FAERS Safety Report 9867009 (Version 2)
Quarter: 2014Q2

REPORT INFORMATION
  Report Type: Spontaneous
  Country: US (occurrence: US)
  Receive Date: 20140204
  Receipt Date: 20140401
  Transmission Date: 20141212
  Serious: Yes (Life-Threatening, Hospitalization)
  Sender: FDA-Public Use
  Company Number: US-SA-2014SA011836

PATIENT
  Age: 45 Year
  Sex: Male
  Weight: 77.5 kg

DRUGS (3)
  1. HECTOROL [Suspect]
     Indication: HYPERPARATHYROIDISM
     Route: 042
     Dates: start: 20140111, end: 20140123
  2. ERYTHROPOIETIN [Concomitant]
     Indication: ANAEMIA
     Dosage: DOSE:4000 UNIT(S)
  3. HEPARIN [Concomitant]
     Indication: THROMBOSIS PROPHYLAXIS
     Dosage: DOSE:5000 UNIT(S)

REACTIONS (1)
  - Respiratory arrest [Recovered/Resolved]
